FAERS Safety Report 16251424 (Version 1)
Quarter: 2019Q2

REPORT INFORMATION
  Report Type: Spontaneous
  Country: US (occurrence: US)
  Receive Date: 20190426
  Receipt Date: 20190426
  Transmission Date: 20190711
  Serious: Yes (Death, Other)
  Sender: FDA-Public Use
  Company Number: None

PATIENT
  Sex: Female
  Weight: 76.5 kg

DRUGS (11)
  1. BUPRENORPHINE. [Suspect]
     Active Substance: BUPRENORPHINE
     Indication: DRUG DEPENDENCE
     Dates: start: 20170612, end: 20170613
  2. BUPROPION. [Suspect]
     Active Substance: BUPROPION
  3. ESZOPICLONE. [Suspect]
     Active Substance: ESZOPICLONE
  4. GABAPENTIN. [Suspect]
     Active Substance: GABAPENTIN
  5. METOCLOPRAMIDE. [Suspect]
     Active Substance: METOCLOPRAMIDE
  6. PROMETHAZINE [Suspect]
     Active Substance: PROMETHAZINE\PROMETHAZINE HYDROCHLORIDE
  7. KLONOPIN [Suspect]
     Active Substance: CLONAZEPAM
  8. FLUCONAZOLE. [Suspect]
     Active Substance: FLUCONAZOLE
  9. ACETAMINOPHEN. [Suspect]
     Active Substance: ACETAMINOPHEN
  10. ARIPIPRAZOLE. [Suspect]
     Active Substance: ARIPIPRAZOLE
  11. FLUOXETINE [Suspect]
     Active Substance: FLUOXETINE HYDROCHLORIDE

REACTIONS (3)
  - Unresponsive to stimuli [None]
  - Toxicity to various agents [None]
  - Drug interaction [None]
